FAERS Safety Report 9659511 (Version 1)
Quarter: 2013Q4

REPORT INFORMATION
  Report Type: Spontaneous
  Country: US (occurrence: US)
  Receive Date: 20131031
  Receipt Date: 20131031
  Transmission Date: 20140711
  Serious: Yes (Death)
  Sender: FDA-Public Use
  Company Number: PHEH2013US022765

PATIENT
  Sex: Male

DRUGS (3)
  1. CLOZARIL [Suspect]
     Indication: CONVULSION
     Dosage: 100 MG, BID
     Route: 048
  2. DIVALPROEX [Concomitant]
     Indication: CONVULSION
     Dosage: UNK
  3. MIRTAZAPINE [Concomitant]
     Dosage: UNK

REACTIONS (1)
  - Death [Fatal]
